FAERS Safety Report 5797247-9 (Version None)
Quarter: 2008Q3

REPORT INFORMATION
  Report Type: 
  Country: None (occurrence: None)
  Receive Date: 20080701
  Receipt Date: 20080623
  Transmission Date: 20090109
  Serious: Yes (Hospitalization, Other)
  Sender: FDA-Public Use
  Company Number: GB-MERCK-0806GBR00096

PATIENT
  Age: 47 Year
  Sex: Female

DRUGS (7)
  1. DECADRON [Suspect]
     Route: 065
     Dates: start: 20080523, end: 20080527
  2. AMITRIPTYLINE HYDROCHLORIDE [Concomitant]
     Route: 065
  3. DICLOFENAC [Concomitant]
     Route: 065
  4. DIHYDROCODEINE [Concomitant]
     Route: 065
  5. OMEPRAZOLE [Concomitant]
     Route: 065
  6. ACETAMINOPHEN [Concomitant]
     Route: 065
  7. PIZOTYLINE MALATE [Concomitant]
     Route: 065

REACTIONS (3)
  - AGITATED DEPRESSION [None]
  - ANXIETY [None]
  - PSYCHOTIC DISORDER [None]
